FAERS Safety Report 24243382 (Version 1)
Quarter: 2024Q3

REPORT INFORMATION
  Report Type: Spontaneous
  Country: MX (occurrence: MX)
  Receive Date: 20240823
  Receipt Date: 20240823
  Transmission Date: 20241016
  Serious: Yes (Other)
  Sender: BAYER
  Company Number: MX-BAYER-2024A120723

PATIENT

DRUGS (1)
  1. FLANAX CAPS [Suspect]
     Active Substance: NAPROXEN

REACTIONS (1)
  - Haemorrhage [None]
